FAERS Safety Report 17300387 (Version 1)
Quarter: 2020Q1

REPORT INFORMATION
  Report Type: Spontaneous
  Country: US (occurrence: US)
  Receive Date: 20200121
  Receipt Date: 20200121
  Transmission Date: 20200409
  Serious: Yes (Other)
  Sender: FDA-Public Use
  Company Number: None

PATIENT
  Age: 46 Year
  Sex: Female
  Weight: 84.6 kg

DRUGS (6)
  1. PROBIOTIC [Concomitant]
     Active Substance: PROBIOTICS NOS
  2. CALCIUM [Concomitant]
     Active Substance: CALCIUM
  3. BLACK COHOSH [Concomitant]
     Active Substance: BLACK COHOSH
  4. NP THYROID [Suspect]
     Active Substance: LEVOTHYROXINE\LIOTHYRONINE
     Indication: HYPOTHYROIDISM
     Dosage: ?          QUANTITY:90 TABLET(S);?
     Route: 048
  5. MILK THISTLE [Concomitant]
     Active Substance: DIETARY SUPPLEMENT\HERBALS\MILK THISTLE
  6. APPLE CIDER VINEGAR [Concomitant]
     Active Substance: APPLE CIDER VINEGAR

REACTIONS (12)
  - Hypothyroidism [None]
  - Drug ineffective [None]
  - Product odour abnormal [None]
  - Disease recurrence [None]
  - Weight increased [None]
  - Fatigue [None]
  - Manufacturing materials issue [None]
  - Acne [None]
  - Alopecia [None]
  - Hepatic enzyme increased [None]
  - Asthenia [None]
  - Abdominal pain upper [None]

NARRATIVE: CASE EVENT DATE: 20191001
